FAERS Safety Report 5680564-0 (Version None)
Quarter: 2008Q1

REPORT INFORMATION
  Report Type: 
  Country: None (occurrence: None)
  Receive Date: 20080326
  Receipt Date: 20080211
  Transmission Date: 20080703
  Serious: Yes (Hospitalization)
  Sender: FDA-Public Use
  Company Number: PHHO2006DE18756

PATIENT

DRUGS (4)
  1. TOBI [Suspect]
     Indication: PSEUDOMONAS INFECTION
     Dosage: 300 MG, BID
     Dates: start: 20050927, end: 20051027
  2. CREON [Concomitant]
  3. CEFUROXIME [Concomitant]
     Dates: start: 20050113
  4. SALBUTAMOL [Concomitant]
     Dates: start: 20040915

REACTIONS (1)
  - PSEUDOMONAS INFECTION [None]
